FAERS Safety Report 4733359-6 (Version None)
Quarter: 2005Q3

REPORT INFORMATION
  Report Type: 
  Country: None (occurrence: None)
  Receive Date: 20050803
  Receipt Date: 20041122
  Transmission Date: 20060218
  Serious: Yes (Death)
  Sender: FDA-Public Use
  Company Number: US-BRISTOL-MYERS SQUIBB COMPANY-12784559

PATIENT
  Sex: Male
  Weight: 2 kg

DRUGS (1)
  1. ABILIFY [Suspect]
     Route: 064

REACTIONS (3)
  - CARDIAC ARREST NEONATAL [None]
  - NEONATAL RESPIRATORY DISTRESS SYNDROME [None]
  - PREMATURE BABY [None]
